FAERS Safety Report 23645319 (Version 1)
Quarter: 2024Q1

REPORT INFORMATION
  Report Type: Spontaneous
  Country: US (occurrence: US)
  Receive Date: 20240318
  Receipt Date: 20240318
  Transmission Date: 20240410
  Serious: No
  Sender: FDA-Public Use
  Company Number: US-SANOFI-01976625

PATIENT
  Sex: Female

DRUGS (1)
  1. AMBIEN [Suspect]
     Active Substance: ZOLPIDEM TARTRATE
     Indication: Pain management
     Dosage: 30 CAPSULES QD AND DRUG TREATMENT DURATION:6 YEARS

REACTIONS (2)
  - Headache [Unknown]
  - Off label use [Unknown]
